FAERS Safety Report 17169437 (Version 1)
Quarter: 2019Q4

REPORT INFORMATION
  Report Type: Spontaneous
  Country: US (occurrence: US)
  Receive Date: 20191218
  Receipt Date: 20191218
  Transmission Date: 20200122
  Serious: Yes (Death, Other)
  Sender: FDA-Public Use
  Company Number: NVSC2019US072485

PATIENT
  Age: 4 Month
  Sex: Female

DRUGS (6)
  1. TRIAMCINOLONE [Suspect]
     Active Substance: TRIAMCINOLONE
     Indication: GRAFT VERSUS HOST DISEASE
     Dosage: UNK
     Route: 065
  2. HYDROCORTISONE. [Suspect]
     Active Substance: HYDROCORTISONE
     Indication: PRODUCT USED FOR UNKNOWN INDICATION
     Dosage: UNK
     Route: 061
  3. ETANERCEPT [Suspect]
     Active Substance: ETANERCEPT
     Indication: GRAFT VERSUS HOST DISEASE
     Dosage: 0.4 MG/KG (8 DOSES)
     Route: 058
  4. TACROLIMUS. [Suspect]
     Active Substance: TACROLIMUS
     Indication: GRAFT VERSUS HOST DISEASE
     Dosage: 0.4 MG, Q12H (BY MOUTH)
     Route: 065
  5. PREDNISOLONE. [Suspect]
     Active Substance: PREDNISOLONE
     Indication: GRAFT VERSUS HOST DISEASE
     Dosage: 6 MG, QD (BY MOUTH)
     Route: 065
  6. CLOBETASOL [Suspect]
     Active Substance: CLOBETASOL
     Indication: PRODUCT USED FOR UNKNOWN INDICATION
     Route: 065

REACTIONS (6)
  - Graft versus host disease [Fatal]
  - Respiratory distress [Fatal]
  - Urinary tract infection bacterial [Fatal]
  - Product use in unapproved indication [Unknown]
  - Hypoxia [Fatal]
  - Staphylococcal infection [Fatal]
